FAERS Safety Report 5309493-9 (Version None)
Quarter: 2007Q2

REPORT INFORMATION
  Report Type: 
  Country: None (occurrence: None)
  Receive Date: 20070424
  Receipt Date: 20070418
  Transmission Date: 20071010
  Serious: Yes (Other)
  Sender: FDA-Public Use
  Company Number: 155429USA

PATIENT
  Age: 12 Year
  Sex: Male

DRUGS (3)
  1. PROPOFOL [Suspect]
     Indication: ANAESTHESIA
     Dosage: 40 MG, INTRAVENOUS
     Route: 042
  2. LIDOCAINE [Suspect]
     Indication: ANAESTHESIA
  3. FENTANYL CITRATE [Suspect]
     Indication: ANAESTHESIA

REACTIONS (3)
  - CONVULSION [None]
  - RETROGRADE AMNESIA [None]
  - TRANSIENT ISCHAEMIC ATTACK [None]
